FAERS Safety Report 18558549 (Version 2)
Quarter: 2021Q1

REPORT INFORMATION
  Report Type: Report from Study
  Country: JP (occurrence: JP)
  Receive Date: 20201130
  Receipt Date: 20210324
  Transmission Date: 20210419
  Serious: Yes (Other)
  Sender: FDA-Public Use
  Company Number: NVSJ2020JP012273

PATIENT
  Age: 75 Year
  Sex: Female

DRUGS (6)
  1. REVOLADE TAB [Suspect]
     Active Substance: ELTROMBOPAG OLAMINE
     Indication: APLASTIC ANAEMIA
     Dosage: 25 MG
     Route: 048
     Dates: start: 20190314, end: 20190326
  2. REVOLADE TAB [Suspect]
     Active Substance: ELTROMBOPAG OLAMINE
     Dosage: 75 MG
     Route: 048
     Dates: start: 20190410, end: 20190423
  3. REVOLADE TAB [Suspect]
     Active Substance: ELTROMBOPAG OLAMINE
     Dosage: 50 MG
     Route: 048
     Dates: start: 20190327, end: 20190409
  4. REVOLADE TAB [Suspect]
     Active Substance: ELTROMBOPAG OLAMINE
     Dosage: 100 MG
     Route: 048
     Dates: start: 20190424, end: 20190503
  5. REVOLADE TAB [Suspect]
     Active Substance: ELTROMBOPAG OLAMINE
     Dosage: 100 MG
     Route: 048
     Dates: start: 20190513, end: 20190527
  6. CYCLOSPORINE. [Suspect]
     Active Substance: CYCLOSPORINE
     Indication: APLASTIC ANAEMIA
     Dosage: 200 MG
     Route: 048
     Dates: start: 20190314, end: 20190527

REACTIONS (5)
  - Altered state of consciousness [Unknown]
  - Therapy non-responder [Unknown]
  - Sepsis [Unknown]
  - Immunosuppression [Unknown]
  - Product use in unapproved indication [Unknown]
